FAERS Safety Report 9417805 (Version 2)
Quarter: 2013Q3

REPORT INFORMATION
  Report Type: Spontaneous
  Country: AT (occurrence: AT)
  Receive Date: 20130724
  Receipt Date: 20130812
  Transmission Date: 20140515
  Serious: Yes (Hospitalization)
  Sender: FDA-Public Use
  Company Number: AT-GLAXOSMITHKLINE-B0910414A

PATIENT
  Age: 21 Year
  Sex: Male
  Weight: 70 kg

DRUGS (1)
  1. VOTRIENT [Suspect]
     Indication: SYNOVIAL SARCOMA METASTATIC
     Dosage: 800MG PER DAY
     Dates: start: 20130319, end: 20130718

REACTIONS (3)
  - Pneumothorax [Recovered/Resolved]
  - Dyspnoea [Unknown]
  - Chest pain [Unknown]
